FAERS Safety Report 6829951-5 (Version None)
Quarter: 2010Q3

REPORT INFORMATION
  Report Type: 
  Country: None (occurrence: None)
  Receive Date: 20100711
  Receipt Date: 20100405
  Transmission Date: 20110219
  Serious: No
  Sender: FDA-Public Use
  Company Number: US-ALLERGAN-1004460US

PATIENT
  Age: 62 Year
  Sex: Female

DRUGS (4)
  1. LATISSE [Suspect]
     Indication: GROWTH OF EYELASHES
     Dosage: 1 GTT, QHS
     Dates: start: 20100101, end: 20100301
  2. DEPRESSION MEDICATION [Concomitant]
     Indication: DEPRESSION
     Dosage: UNK
  3. PREMARIN [Concomitant]
     Indication: MENOPAUSE
     Dosage: UNK
  4. DURAGESIC-100 [Concomitant]
     Indication: PAIN

REACTIONS (2)
  - MADAROSIS [None]
  - SKIN HYPERPIGMENTATION [None]
